FAERS Safety Report 6505341-X (Version None)
Quarter: 2009Q4

REPORT INFORMATION
  Report Type: 
  Country: None (occurrence: None)
  Receive Date: 20091218
  Receipt Date: 20091208
  Transmission Date: 20100525
  Serious: Yes (Other)
  Sender: FDA-Public Use
  Company Number: FR-JNJFOC-20091202778

PATIENT

DRUGS (4)
  1. INFLIXIMAB [Suspect]
     Indication: RHEUMATOID ARTHRITIS
     Dosage: DURATION: 6 MONTHS
     Route: 042
  2. STEROIDS NOS [Concomitant]
  3. METHOTREXATE [Concomitant]
  4. DISEASE MODIFYING ANTIRHEUMATIC DRUGS [Concomitant]

REACTIONS (1)
  - CUTANEOUS LUPUS ERYTHEMATOSUS [None]
